FAERS Safety Report 8365081-1 (Version None)
Quarter: 2012Q2

REPORT INFORMATION
  Report Type: 
  Country: None (occurrence: None)
  Receive Date: 20120514
  Receipt Date: 20120430
  Transmission Date: 20120825
  Serious: Yes (Death)
  Sender: FDA-Public Use
  Company Number: KAD201205-000300

PATIENT
  Age: 60 Year
  Sex: Female

DRUGS (2)
  1. RIBAVIRIN [Suspect]
     Indication: HEPATITIS C
  2. PEGYLATED INTERFERON (PEGYLATED INTERFERON) [Suspect]
     Indication: HEPATITIS C

REACTIONS (5)
  - HEPATIC FAILURE [None]
  - INFECTION [None]
  - AUTOIMMUNE HEPATITIS [None]
  - HISTIOCYTOSIS HAEMATOPHAGIC [None]
  - HEPATIC ENCEPHALOPATHY [None]
